FAERS Safety Report 14937561 (Version 2)
Quarter: 2020Q1

REPORT INFORMATION
  Report Type: Spontaneous
  Country: US (occurrence: US)
  Receive Date: 20180525
  Receipt Date: 20200127
  Transmission Date: 20200409
  Serious: No
  Sender: FDA-Public Use
  Company Number: US-JNJFOC-20180519147

PATIENT
  Sex: Male

DRUGS (2)
  1. RISPERDAL [Suspect]
     Active Substance: RISPERIDONE
     Indication: AUTISM SPECTRUM DISORDER
     Dosage: AT A VARYING DOSE OF 0.25 MG, 0.50 MG, 0.75 MG AND 1 MG
     Route: 048
     Dates: start: 20071009, end: 20130821
  2. RISPERIDONE. [Suspect]
     Active Substance: RISPERIDONE
     Indication: AUTISM SPECTRUM DISORDER
     Dosage: AT A VARYING DOSE OF 0.5 MG , 1 MG AND 2 MG
     Route: 048
     Dates: start: 20091015, end: 20130821

REACTIONS (2)
  - Emotional distress [Unknown]
  - Gynaecomastia [Unknown]
